FAERS Safety Report 4595742-1 (Version None)
Quarter: 2005Q1

REPORT INFORMATION
  Report Type: 
  Country: None (occurrence: None)
  Receive Date: 20050224
  Receipt Date: 20050209
  Transmission Date: 20050727
  Serious: Yes (Hospitalization)
  Sender: FDA-Public Use
  Company Number: S05-DEN-00341-01

PATIENT
  Age: 79 Year
  Sex: Female

DRUGS (13)
  1. CIPRALEX (ESCITALOPRAM) [Suspect]
     Indication: BIPOLAR DISORDER
     Dosage: 10 MG QD PO
     Route: 048
     Dates: start: 20040301, end: 20041203
  2. CIPRALEX (ESCITALOPRAM) [Suspect]
     Indication: DEPRESSION
     Dosage: 10 MG QD PO
     Route: 048
     Dates: start: 20040301, end: 20041203
  3. LANSOPRAZOLE [Concomitant]
  4. PRIMPERAN TAB [Concomitant]
  5. NOVAZULID [Concomitant]
  6. ODRIK (TRANDOLAPRIL) [Concomitant]
  7. FUROSEMIDE [Concomitant]
  8. KELEORID (POTASSIUM CHLORIDE) [Concomitant]
  9. SELO-ZOK (METOPROLOL SUCCINATE) [Concomitant]
  10. REMERON [Concomitant]
  11. ACETAMINOPHEN [Concomitant]
  12. ALBYL-ENTEROSOLUBILE [Concomitant]
  13. FOSAMAX [Concomitant]

REACTIONS (3)
  - HIATUS HERNIA [None]
  - NAUSEA [None]
  - VOMITING [None]
